FAERS Safety Report 4378292-7 (Version None)
Quarter: 2004Q2

REPORT INFORMATION
  Report Type: 
  Country: None (occurrence: None)
  Receive Date: 20040609
  Receipt Date: 20040526
  Transmission Date: 20050107
  Serious: Yes (Death, Disabling, Other)
  Sender: FDA-Public Use
  Company Number: USA040568544

PATIENT
  Age: 36 Year
  Sex: Male

DRUGS (1)
  1. INSULIN [Suspect]

REACTIONS (4)
  - BLINDNESS [None]
  - CEREBROVASCULAR ACCIDENT [None]
  - PHARMACEUTICAL PRODUCT COMPLAINT [None]
  - UNEVALUABLE EVENT [None]
